FAERS Safety Report 8818370 (Version 5)
Quarter: 2013Q2

REPORT INFORMATION
  Report Type: Spontaneous
  Country: US (occurrence: US)
  Receive Date: 20121001
  Receipt Date: 20130516
  Transmission Date: 20140414
  Serious: Yes (Hospitalization, Other)
  Sender: FDA-Public Use
  Company Number: US-009507513-1103USA00957

PATIENT
  Sex: Female

DRUGS (4)
  1. FOSAMAX [Suspect]
     Indication: BONE LOSS
     Dosage: 70 MG, UNK
     Route: 048
     Dates: start: 20030101, end: 20080423
  2. CALCIUM (UNSPECIFIED) [Concomitant]
     Dosage: 1 DF, QD
     Dates: start: 2000
  3. VITAMIN D (UNSPECIFIED) [Concomitant]
     Dosage: 1 DF, QD
     Dates: start: 2000
  4. VITAMINS (UNSPECIFIED) [Concomitant]
     Dosage: 1 DF, QD
     Dates: start: 2000

REACTIONS (78)
  - Femur fracture [Recovered/Resolved]
  - Intramedullary rod insertion [Unknown]
  - Bone debridement [Unknown]
  - Medical device removal [Unknown]
  - Intramedullary rod insertion [Unknown]
  - Bone debridement [Unknown]
  - Intramedullary rod insertion [Unknown]
  - Intramedullary rod insertion [Unknown]
  - Femur fracture [Unknown]
  - Intramedullary rod insertion [Unknown]
  - Breast cancer [Unknown]
  - Hip fracture [Unknown]
  - Fall [Unknown]
  - Pelvic fracture [Unknown]
  - Fall [Unknown]
  - Hip surgery [Unknown]
  - Fall [Unknown]
  - Deep vein thrombosis [Unknown]
  - Renal failure chronic [Unknown]
  - Renal failure acute [Recovered/Resolved]
  - Peroneal nerve palsy [Unknown]
  - Gastroenteritis Escherichia coli [Unknown]
  - Jaw fracture [Unknown]
  - Emphysematous cystitis [Unknown]
  - Open reduction of fracture [Unknown]
  - Femur fracture [Unknown]
  - Gastrooesophageal reflux disease [Unknown]
  - Abscess limb [Unknown]
  - Device breakage [Unknown]
  - Fracture nonunion [Unknown]
  - Depression [Unknown]
  - Anxiety [Unknown]
  - Radius fracture [Unknown]
  - Osteopetrosis [Unknown]
  - Cardiovascular disorder [Unknown]
  - Urinary tract infection [Unknown]
  - Venous insufficiency [Unknown]
  - Osteoarthritis [Unknown]
  - Skin candida [Recovered/Resolved]
  - Osteoporosis [Unknown]
  - Normochromic normocytic anaemia [Unknown]
  - Hypertension [Unknown]
  - Seasonal allergy [Unknown]
  - Osteoarthritis [Unknown]
  - Breast lump removal [Unknown]
  - Heart rate irregular [Unknown]
  - Hypercholesterolaemia [Unknown]
  - Upper limb fracture [Unknown]
  - Rotator cuff syndrome [Unknown]
  - Cystitis noninfective [Unknown]
  - Laceration [Unknown]
  - Chronic obstructive pulmonary disease [Unknown]
  - Wound drainage [Unknown]
  - Arteriosclerosis coronary artery [Unknown]
  - Atrial fibrillation [Unknown]
  - Infection [Unknown]
  - Blood urea increased [Unknown]
  - Limb operation [Unknown]
  - Osteomyelitis [Unknown]
  - Osteopenia [Unknown]
  - Pulmonary fibrosis [Unknown]
  - Groin pain [Recovered/Resolved]
  - Fall [Unknown]
  - Hypocalcaemia [Unknown]
  - Lung disorder [Unknown]
  - Pulmonary mass [Unknown]
  - Lung infiltration [Unknown]
  - Joint dislocation [Unknown]
  - Chest pain [Unknown]
  - Lobar pneumonia [Unknown]
  - Leukocytosis [Unknown]
  - Hyperglycaemia [Unknown]
  - Granuloma [Unknown]
  - Bunion operation [Unknown]
  - Vascular calcification [Unknown]
  - Intervertebral disc degeneration [Unknown]
  - Gastritis [Unknown]
  - Constipation [Unknown]
